FAERS Safety Report 4442317-0 (Version None)
Quarter: 2004Q3

REPORT INFORMATION
  Report Type: 
  Country: None (occurrence: None)
  Receive Date: 20040903
  Receipt Date: 20040625
  Transmission Date: 20050211
  Serious: Yes (Other)
  Sender: FDA-Public Use
  Company Number: 2004UW05859

PATIENT
  Age: 26 Year
  Sex: Male
  Weight: 80.7403 kg

DRUGS (4)
  1. CRESTOR [Suspect]
     Indication: BLOOD CHOLESTEROL INCREASED
     Dosage: 10 MG QD PO
     Route: 048
     Dates: start: 20040302, end: 20040306
  2. LEXAPRO [Concomitant]
  3. STRATTERA [Concomitant]
  4. SONATA [Concomitant]

REACTIONS (3)
  - HEPATIC ENZYME INCREASED [None]
  - MYALGIA [None]
  - TINNITUS [None]
